FAERS Safety Report 18756175 (Version 1)
Quarter: 2021Q1

REPORT INFORMATION
  Report Type: Report from Study
  Country: CA (occurrence: CA)
  Receive Date: 20210119
  Receipt Date: 20210119
  Transmission Date: 20210419
  Serious: Yes (Death)
  Sender: FDA-Public Use
  Company Number: CA-PFIZER INC-2021030093

PATIENT

DRUGS (5)
  1. VINCRISTINE SULFATE. [Suspect]
     Active Substance: VINCRISTINE SULFATE
     Indication: SMALL CELL LUNG CANCER EXTENSIVE STAGE
     Dosage: 1.2 MG/M2, CYCLIC (DAY 1; GIVEN IN AN ALTERNATING FASHION EVERY 3 WEEK)
     Route: 042
  2. ETOPOSIDE. [Suspect]
     Active Substance: ETOPOSIDE
     Indication: SMALL CELL LUNG CANCER EXTENSIVE STAGE
     Dosage: 100 MG/M2, CYCLIC (DAY 1, 2, 3; GIVEN IN AN ALTERNATING FASHION EVERY 3 WEEK)
     Route: 048
  3. CISPLATIN. [Suspect]
     Active Substance: CISPLATIN
     Indication: SMALL CELL LUNG CANCER EXTENSIVE STAGE
     Dosage: 25 MG/M2, CYCLIC (DAY 1, 2, 3; GIVEN IN AN ALTERNATING FASHION EVERY 3 WEEK)
     Route: 042
  4. CYCLOPHOSPHAMIDE. [Suspect]
     Active Substance: CYCLOPHOSPHAMIDE
     Indication: SMALL CELL LUNG CANCER EXTENSIVE STAGE
     Dosage: 1000 MG/M2, CYCLIC (DAY 1, 2, 3; GIVEN IN AN ALTERNATING FASHION EVERY 3 WEEK)
     Route: 042
  5. DOXORUBICIN HCL [Suspect]
     Active Substance: DOXORUBICIN HYDROCHLORIDE
     Indication: SMALL CELL LUNG CANCER EXTENSIVE STAGE
     Dosage: 50 MG/M2, CYCLIC (DAY 1; GIVEN IN AN ALTERNATING FASHION EVERY 3 WEEK)
     Route: 042

REACTIONS (1)
  - Myocardial ischaemia [Fatal]
